FAERS Safety Report 18962714 (Version 1)
Quarter: 2021Q1

REPORT INFORMATION
  Report Type: Spontaneous
  Country: US (occurrence: US)
  Receive Date: 20210302
  Receipt Date: 20210302
  Transmission Date: 20210420
  Serious: Yes (Hospitalization)
  Sender: FDA-Public Use
  Company Number: None

PATIENT
  Age: 74 Year
  Sex: Female

DRUGS (17)
  1. METOLAZONE. [Concomitant]
     Active Substance: METOLAZONE
  2. HUMULIN N [Concomitant]
     Active Substance: INSULIN HUMAN
  3. ALLOPURINOL. [Concomitant]
     Active Substance: ALLOPURINOL
  4. AMBRISENTAN 10MG TABLETS 30/BO: 10MG [Suspect]
     Active Substance: AMBRISENTAN
     Indication: PULMONARY ARTERIAL HYPERTENSION
     Route: 048
     Dates: start: 20190501
  5. ATORVASTATIN [Concomitant]
     Active Substance: ATORVASTATIN
  6. WIXELA INHUB [Concomitant]
     Active Substance: FLUTICASONE PROPIONATE\SALMETEROL XINAFOATE
  7. ALBUTEROL INHL NEB SOLN [Concomitant]
     Active Substance: ALBUTEROL
  8. SODIUM CHLORIDE INHL NEB SOLN [Concomitant]
  9. LEVOTHYROXINE. [Concomitant]
     Active Substance: LEVOTHYROXINE
  10. RESPIMAT [Concomitant]
  11. SILDENAFIL. [Concomitant]
     Active Substance: SILDENAFIL
  12. EPOETIN [Concomitant]
     Active Substance: ERYTHROPOIETIN
  13. FERROUS SULFATE. [Concomitant]
     Active Substance: FERROUS SULFATE
  14. FUROSEMIDE. [Concomitant]
     Active Substance: FUROSEMIDE
  15. ALBUTEROL HFA [Concomitant]
     Active Substance: ALBUTEROL SULFATE
  16. RENVELA [Concomitant]
     Active Substance: SEVELAMER CARBONATE
  17. SPIRIVA [Concomitant]
     Active Substance: TIOTROPIUM BROMIDE MONOHYDRATE

REACTIONS (7)
  - Packed red blood cell transfusion [None]
  - Anaemia [None]
  - Epistaxis [None]
  - Fluid overload [None]
  - COVID-19 immunisation [None]
  - Dyspnoea [None]
  - Pyrexia [None]

NARRATIVE: CASE EVENT DATE: 20210214
